FAERS Safety Report 8800236 (Version 2)
Quarter: 2012Q4

REPORT INFORMATION
  Report Type: 
  Country: AR (occurrence: AR)
  Receive Date: 20120921
  Receipt Date: 20120924
  Transmission Date: 20130627
  Serious: Yes (Other)
  Sender: FDA-Public Use
  Company Number: PHHY2012AR081146

PATIENT
  Age: 12 Year
  Sex: Male

DRUGS (3)
  1. LAPENAX [Suspect]
     Indication: BIPOLAR DISORDER
     Route: 048
  2. LAMOTRIGINE [Concomitant]
  3. HALOPERIDOL [Concomitant]

REACTIONS (3)
  - Neutrophilia [Recovering/Resolving]
  - Leukocytosis [Recovering/Resolving]
  - Nasopharyngitis [Unknown]
